FAERS Safety Report 12523562 (Version 1)
Quarter: 2016Q3

REPORT INFORMATION
  Report Type: Report from Study
  Country: US (occurrence: US)
  Receive Date: 20160703
  Receipt Date: 20160703
  Transmission Date: 20161109
  Serious: No
  Sender: FDA-Public Use
  Company Number: US-AMGEN-USASL2016081263

PATIENT
  Age: 69 Year
  Sex: Female

DRUGS (1)
  1. ENBREL [Suspect]
     Active Substance: ETANERCEPT
     Indication: PSORIASIS
     Dosage: UNK UNK, QWK
     Route: 065
     Dates: start: 20151014

REACTIONS (10)
  - Night sweats [Unknown]
  - Gastrooesophageal reflux disease [Unknown]
  - Injection site pruritus [Not Recovered/Not Resolved]
  - Skin tightness [Unknown]
  - Weight increased [Unknown]
  - Injection site erythema [Not Recovered/Not Resolved]
  - Fatigue [Unknown]
  - Injection site swelling [Not Recovered/Not Resolved]
  - Injection site bruising [Not Recovered/Not Resolved]
  - Sciatica [Unknown]
